FAERS Safety Report 4338904-0 (Version None)
Quarter: 2004Q2

REPORT INFORMATION
  Report Type: 
  Country: None (occurrence: None)
  Receive Date: 20040409
  Receipt Date: 20040331
  Transmission Date: 20050107
  Serious: Yes (Hospitalization, Other)
  Sender: FDA-Public Use
  Company Number: 2001067881DE

PATIENT
  Age: 63 Year
  Sex: Female

DRUGS (7)
  1. CAMPTOSAR [Suspect]
     Indication: COLON CANCER
     Dosage: 150 MG, CYCLIC, IV
     Route: 042
     Dates: start: 20010119
  2. ADRUCIL [Suspect]
     Indication: COLON CANCER
     Dosage: 3790 MG, CYCLIC, IV
     Route: 042
     Dates: start: 20010119
  3. CALCIUM LEUCOVORIN ^LEDERLE^ (CALCIUM FOLINATE) [Suspect]
     Indication: COLON CANCER
     Dosage: 930 MG, CYCLIC
     Dates: start: 20010119
  4. TRAMADOL HCL [Concomitant]
  5. PANTOPRAZOLE [Concomitant]
  6. MUSARIL [Concomitant]
  7. NOVALDIN INJ [Concomitant]

REACTIONS (2)
  - BACK PAIN [None]
  - SPONDYLOSIS [None]
